FAERS Safety Report 24816793 (Version 1)
Quarter: 2025Q1

REPORT INFORMATION
  Report Type: Spontaneous
  Country: CN (occurrence: CN)
  Receive Date: 20250107
  Receipt Date: 20250107
  Transmission Date: 20250408
  Serious: Yes (Hospitalization, Other)
  Sender: SANOFI AVENTIS
  Company Number: CN-SA-2025SA003035

PATIENT
  Age: 74 Year
  Sex: Female
  Weight: 55 kg

DRUGS (4)
  1. CLOPIDOGREL BISULFATE [Suspect]
     Active Substance: CLOPIDOGREL BISULFATE
     Indication: Coronary artery disease
     Dosage: 75 MG, QD
     Route: 048
     Dates: start: 20241206, end: 20241210
  2. NADROPARIN CALCIUM [Suspect]
     Active Substance: NADROPARIN CALCIUM
     Indication: Thrombosis
     Dosage: 0.3 ML, BID
     Route: 058
     Dates: start: 20241206, end: 20241212
  3. NADROPARIN CALCIUM [Suspect]
     Active Substance: NADROPARIN CALCIUM
     Dosage: 0.4 ML, QD
     Route: 058
     Dates: start: 20241212, end: 20241214
  4. OCTREOTIDE ACETATE [Concomitant]
     Active Substance: OCTREOTIDE ACETATE
     Indication: Constipation
     Dosage: 0.3 MG, BID
     Route: 041
     Dates: start: 20241212, end: 20241214

REACTIONS (10)
  - Arteriosclerosis [Recovering/Resolving]
  - Deep vein thrombosis [Recovering/Resolving]
  - Joint swelling [Recovering/Resolving]
  - Skin temperature increased [Recovering/Resolving]
  - Soft tissue infection [Recovering/Resolving]
  - Abscess [Recovering/Resolving]
  - Subcutaneous haematoma [Recovered/Resolved]
  - Occult blood positive [Recovering/Resolving]
  - Arthralgia [Recovering/Resolving]
  - Diarrhoea [Recovering/Resolving]

NARRATIVE: CASE EVENT DATE: 20241206
